APPROVED DRUG PRODUCT: LAMOTRIGINE
Active Ingredient: LAMOTRIGINE
Strength: 25MG
Dosage Form/Route: TABLET;ORAL
Application: A078134 | Product #001
Applicant: HIKMA PHARMACEUTICALS
Approved: Apr 19, 2011 | RLD: No | RS: No | Type: DISCN